FAERS Safety Report 4864149-1 (Version None)
Quarter: 2005Q4

REPORT INFORMATION
  Report Type: 
  Country: None (occurrence: None)
  Receive Date: 20051222
  Receipt Date: 20051220
  Transmission Date: 20060501
  Serious: Yes (Hospitalization)
  Sender: FDA-Public Use
  Company Number: FR-GLAXOSMITHKLINE-B0404306A

PATIENT
  Age: 44 Year
  Sex: Male
  Weight: 56 kg

DRUGS (5)
  1. ZEFFIX [Suspect]
     Route: 048
     Dates: end: 20010417
  2. SUSTIVA [Suspect]
     Route: 048
  3. INTRON A [Suspect]
     Route: 065
  4. ALDACTONE [Concomitant]
     Route: 048
  5. DAPSONE [Concomitant]
     Route: 065
     Dates: end: 20010420

REACTIONS (3)
  - LIPASE INCREASED [None]
  - PANCREATIC ENZYMES INCREASED [None]
  - PANCREATITIS [None]
